FAERS Safety Report 9999562 (Version 2)
Quarter: 2014Q1

REPORT INFORMATION
  Report Type: Report from Study
  Country: US (occurrence: US)
  Receive Date: 20140312
  Receipt Date: 20140312
  Transmission Date: 20141002
  Serious: Yes (Hospitalization, Other)
  Sender: FDA-Public Use
  Company Number: US-ALEXION-A201305074

PATIENT
  Sex: 0

DRUGS (5)
  1. SOLIRIS [Suspect]
     Indication: PAROXYSMAL NOCTURNAL HAEMOGLOBINURIA
     Dosage: UNK
     Route: 042
     Dates: end: 20121214
  2. ATG SERO [Concomitant]
     Indication: PAROXYSMAL NOCTURNAL HAEMOGLOBINURIA
     Dosage: UNK
     Route: 065
     Dates: start: 20121229, end: 20121229
  3. ATG SERO [Concomitant]
     Dosage: UNK
     Route: 065
     Dates: start: 20121231, end: 20121231
  4. ATG SERO [Concomitant]
     Dosage: UNK
     Route: 065
     Dates: start: 20130102, end: 20130102
  5. ATG SERO [Concomitant]
     Dosage: UNK
     Route: 065
     Dates: start: 20130103, end: 20130103

REACTIONS (3)
  - Drug therapy [Not Recovered/Not Resolved]
  - Platelet transfusion [Not Recovered/Not Resolved]
  - Depression [Not Recovered/Not Resolved]
